FAERS Safety Report 6944282-0 (Version None)
Quarter: 2010Q3

REPORT INFORMATION
  Report Type: 
  Country: None (occurrence: None)
  Receive Date: 20100827
  Receipt Date: 20100819
  Transmission Date: 20110219
  Serious: No
  Sender: FDA-Public Use
  Company Number: US-BIOGENIDEC-2010BI029286

PATIENT
  Age: 45 Year
  Sex: Female

DRUGS (2)
  1. TYSABRI [Suspect]
     Indication: MULTIPLE SCLEROSIS
     Route: 042
     Dates: start: 20080620, end: 20090605
  2. TYSABRI [Suspect]
     Route: 042
     Dates: start: 20100505

REACTIONS (2)
  - HERPES ZOSTER [None]
  - MUSCLE TIGHTNESS [None]
